FAERS Safety Report 8153979-9 (Version None)
Quarter: 2012Q1

REPORT INFORMATION
  Report Type: 
  Country: None (occurrence: None)
  Receive Date: 20120221
  Receipt Date: 20120221
  Transmission Date: 20120608
  Serious: Yes (Life-Threatening, Hospitalization)
  Sender: FDA-Public Use
  Company Number: None

PATIENT
  Age: 59 Year
  Sex: Male
  Weight: 86.182 kg

DRUGS (1)
  1. BUTRANS [Suspect]
     Indication: HEADACHE
     Dosage: 5 MCG/HOUR
     Route: 062
     Dates: start: 20120205, end: 20120206

REACTIONS (15)
  - DIZZINESS [None]
  - BALANCE DISORDER [None]
  - VOMITING [None]
  - LOSS OF CONSCIOUSNESS [None]
  - DYSPNOEA [None]
  - OXYGEN SATURATION DECREASED [None]
  - THINKING ABNORMAL [None]
  - AMNESIA [None]
  - DYSARTHRIA [None]
  - APHASIA [None]
  - HYPOACUSIS [None]
  - CHEST PAIN [None]
  - NAUSEA [None]
  - MALAISE [None]
  - VISUAL IMPAIRMENT [None]
